FAERS Safety Report 22287257 (Version 2)
Quarter: 2023Q2

REPORT INFORMATION
  Report Type: Report from Study
  Country: ES (occurrence: ES)
  Receive Date: 20230505
  Receipt Date: 20230522
  Transmission Date: 20230722
  Serious: Yes (Hospitalization)
  Sender: FDA-Public Use
  Company Number: ES-002147023-NVSC2023ES100737

PATIENT
  Age: 5 Year
  Sex: Male

DRUGS (2)
  1. OMNITROPE [Suspect]
     Active Substance: SOMATROPIN
     Indication: Growth hormone deficiency
     Dosage: 0.4 MG, QD (SUREPAL 5)
     Route: 058
     Dates: start: 20230412, end: 20230424
  2. OMNITROPE [Suspect]
     Active Substance: SOMATROPIN
     Dosage: 0.4 MG, QD (SUREPAL 5)
     Route: 058
     Dates: start: 20230502

REACTIONS (2)
  - Abdominal pain [Recovered/Resolved]
  - Flatulence [Recovered/Resolved]

NARRATIVE: CASE EVENT DATE: 20230424
